FAERS Safety Report 8575682-3 (Version None)
Quarter: 2012Q3

REPORT INFORMATION
  Report Type: 
  Country: None (occurrence: None)
  Receive Date: 20120807
  Receipt Date: 20120803
  Transmission Date: 20120928
  Serious: Yes (Hospitalization, Other)
  Sender: FDA-Public Use
  Company Number: PHEH2007US07738

PATIENT
  Sex: Female
  Weight: 65.805 kg

DRUGS (46)
  1. DECADRON PHOSPHATE [Concomitant]
  2. NAVELBINE [Concomitant]
     Indication: NON-SMALL CELL LUNG CANCER
     Dates: start: 20030801, end: 20040901
  3. PROPOFOL [Concomitant]
     Dosage: 50 MG,
     Dates: start: 20061211, end: 20061211
  4. CARBIDOPA + LEVODOPA [Concomitant]
     Dosage: 1 DF(25/100 ONE TABLET EVERY BEDTIME)
  5. CISPLATIN [Concomitant]
     Indication: NON-SMALL CELL LUNG CANCER
     Dates: start: 20060501, end: 20061101
  6. TAXOTERE [Concomitant]
     Indication: NON-SMALL CELL LUNG CANCER
     Dates: start: 20050801, end: 20050901
  7. SUBLIMAZE PRESERVATIVE FREE [Concomitant]
     Dosage: 1 MG, UNK
     Dates: start: 20070205, end: 20070205
  8. EFFEXOR [Concomitant]
     Dosage: 150 MG,DAILY
     Route: 048
  9. HEPARIN [Concomitant]
  10. MIDAZOLAM [Concomitant]
  11. NEUPOGEN [Concomitant]
     Dosage: 300 UG, UNK
     Dates: start: 20070703, end: 20070717
  12. KLONOPIN [Concomitant]
  13. SUBLIMAZE PRESERVATIVE FREE [Concomitant]
     Dosage: 1 ML,
     Dates: start: 20061211, end: 20061211
  14. LIDOCAINE [Concomitant]
     Dosage: 5.4 ML 2%
     Dates: start: 20061211, end: 20061211
  15. LIDOCAINE [Concomitant]
     Dosage: 5.4 ML 2%
     Dates: start: 20070205, end: 20070205
  16. KEFZOL [Concomitant]
     Dosage: 1 G,
  17. CIPROFLOXACIN [Concomitant]
     Dosage: 500 MG, BID
     Route: 048
  18. COUMADIN [Concomitant]
  19. TARCEVA [Concomitant]
     Indication: NON-SMALL CELL LUNG CANCER
     Dates: start: 20050901
  20. PERIDEX [Concomitant]
  21. CARAFATE [Concomitant]
     Dosage: 1 MG, TID
  22. TAXOL [Concomitant]
     Indication: NON-SMALL CELL LUNG CANCER
     Dates: start: 20051001
  23. PARAPLATIN [Concomitant]
     Indication: NON-SMALL CELL LUNG CANCER
     Dates: start: 20030801, end: 20040901
  24. PROPOFOL [Concomitant]
     Dosage: 50 MG, UNK
     Dates: start: 20070205, end: 20070205
  25. PROMETHAZINE [Concomitant]
     Dosage: 12.5 MG,
     Route: 042
     Dates: start: 20061211, end: 20061211
  26. LORTAB [Concomitant]
     Indication: PAIN
  27. MORPHINE SULFATE [Concomitant]
  28. ONDANSETRON [Concomitant]
     Dosage: 4 MG, Q6H, PRN
  29. RESTORIL [Concomitant]
     Dosage: 12.5 MG, Q6H, PRN
  30. UNASYN [Concomitant]
  31. PROMETHAZINE [Concomitant]
     Dosage: 12.5 MG, UNK
     Route: 042
     Dates: start: 20070205, end: 20070205
  32. ACTONEL [Suspect]
  33. AVASTIN [Concomitant]
     Indication: NON-SMALL CELL LUNG CANCER
     Dates: start: 20030801, end: 20040901
  34. VERSED [Concomitant]
     Dosage: 2 MG,
     Dates: start: 20061211, end: 20061211
  35. TYLENOL [Concomitant]
  36. COLACE [Concomitant]
     Dosage: 100 MG, BID
  37. LOVENOX [Concomitant]
     Dosage: 30 MG, Q24H
  38. DURAGESIC-100 [Concomitant]
  39. ZOMETA [Suspect]
     Indication: HYPERCALCAEMIA OF MALIGNANCY
     Dosage: 4 MG, QMO
     Dates: start: 20031125, end: 20070323
  40. VERSED [Concomitant]
     Dosage: 2 MG, UNK
     Dates: start: 20070205, end: 20070205
  41. PREVACID [Concomitant]
     Dosage: 30 MG, DAILY
     Route: 048
  42. ROMAZICON [Concomitant]
  43. NARCAN [Concomitant]
  44. LEUKINE [Concomitant]
     Dosage: 500 UG, UNK
     Dates: start: 20070705, end: 20070711
  45. COMPAZINE [Concomitant]
  46. NAPROXEN (ALEVE) [Concomitant]

REACTIONS (74)
  - BRONCHIAL CARCINOMA [None]
  - HYPOACUSIS [None]
  - CHILLS [None]
  - URTICARIA [None]
  - LIGAMENT SPRAIN [None]
  - BACK PAIN [None]
  - RENAL FAILURE [None]
  - HYPOMAGNESAEMIA [None]
  - DYSPNOEA EXERTIONAL [None]
  - PYREXIA [None]
  - APPETITE DISORDER [None]
  - ARTERIOSCLEROSIS CORONARY ARTERY [None]
  - CHRONIC OBSTRUCTIVE PULMONARY DISEASE [None]
  - MUSCULOSKELETAL PAIN [None]
  - OSTEITIS [None]
  - AMNESIA [None]
  - MALNUTRITION [None]
  - OSTEONECROSIS OF JAW [None]
  - HYPOAESTHESIA [None]
  - LARYNGOSCOPY [None]
  - ANHEDONIA [None]
  - OSTEOMYELITIS [None]
  - ABSCESS [None]
  - LESION EXCISION [None]
  - FALL [None]
  - SLEEP DISORDER [None]
  - OEDEMA PERIPHERAL [None]
  - ARTHRALGIA [None]
  - TRACHEOSTOMY [None]
  - MULTIPLE INJURIES [None]
  - EPISTAXIS [None]
  - METASTASES TO MENINGES [None]
  - MAGNESIUM METABOLISM DISORDER [None]
  - UPPER LIMB FRACTURE [None]
  - WEIGHT INCREASED [None]
  - PSEUDOMEMBRANOUS COLITIS [None]
  - RECTAL HAEMORRHAGE [None]
  - OSTEOPENIA [None]
  - CHRONIC SINUSITIS [None]
  - DYSTHYMIC DISORDER [None]
  - MOUTH ULCERATION [None]
  - RESPIRATORY FAILURE [None]
  - HYPOXIA [None]
  - ANXIETY [None]
  - CONSTIPATION [None]
  - DEPRESSION [None]
  - RESTLESS LEGS SYNDROME [None]
  - HYPERGLYCAEMIA [None]
  - ARTHRITIS [None]
  - INCONTINENCE [None]
  - DYSPEPSIA [None]
  - SUBARACHNOID HAEMORRHAGE [None]
  - BRONCHOSPASM [None]
  - RESTRICTIVE PULMONARY DISEASE [None]
  - SKIN ULCER [None]
  - EMPHYSEMA [None]
  - HYPOKALAEMIA [None]
  - HYPERTENSION [None]
  - LUNG LOBECTOMY [None]
  - WOUND NECROSIS [None]
  - NASAL CONGESTION [None]
  - WEIGHT DECREASED [None]
  - SINUS TACHYCARDIA [None]
  - HAEMOSIDEROSIS [None]
  - PAIN [None]
  - UNEVALUABLE EVENT [None]
  - ABDOMINAL PAIN [None]
  - TINNITUS [None]
  - DYSPHAGIA [None]
  - DIZZINESS [None]
  - GASTROOESOPHAGEAL REFLUX DISEASE [None]
  - WRIST SURGERY [None]
  - SKIN GRAFT [None]
  - SKIN NECROSIS [None]
